FAERS Safety Report 19809339 (Version 2)
Quarter: 2021Q3

REPORT INFORMATION
  Report Type: Spontaneous
  Country: ZA (occurrence: ZA)
  Receive Date: 20210909
  Receipt Date: 20210920
  Transmission Date: 20211014
  Serious: Yes (Hospitalization)
  Sender: FDA-Public Use
  Company Number: NVSC2021ZA200521

PATIENT
  Age: 46 Year
  Sex: Male

DRUGS (5)
  1. VALSARTAN. [Suspect]
     Active Substance: VALSARTAN
     Indication: CARDIAC FAILURE
     Dosage: 80 MG, BID
     Route: 048
  2. CARLOC [Concomitant]
     Active Substance: CARVEDILOL
     Indication: PRODUCT USED FOR UNKNOWN INDICATION
     Dosage: 25 MG, BID
     Route: 065
  3. ENALAPRIL [Suspect]
     Active Substance: ENALAPRIL
     Indication: CARDIAC FAILURE
     Dosage: 2.5 G, BID
     Route: 048
  4. GLUCOMED [Concomitant]
     Indication: PRODUCT USED FOR UNKNOWN INDICATION
     Dosage: UNK
     Route: 065
  5. LASIX [Concomitant]
     Active Substance: FUROSEMIDE
     Indication: PRODUCT USED FOR UNKNOWN INDICATION
     Dosage: 20 MG, QD
     Route: 065

REACTIONS (6)
  - Ejection fraction decreased [Unknown]
  - Dyspnoea [Unknown]
  - Cardiac failure chronic [Unknown]
  - Fatigue [Unknown]
  - N-terminal prohormone brain natriuretic peptide increased [Unknown]
  - Oedema [Unknown]

NARRATIVE: CASE EVENT DATE: 20210817
